FAERS Safety Report 7578950-7 (Version None)
Quarter: 2011Q2

REPORT INFORMATION
  Report Type: 
  Country: None (occurrence: None)
  Receive Date: 20110628
  Receipt Date: 20110615
  Transmission Date: 20111010
  Serious: Yes (Other)
  Sender: FDA-Public Use
  Company Number: PHHY2011KR54266

PATIENT
  Age: 66 Year
  Sex: Male

DRUGS (6)
  1. CYCLOSPORINE [Suspect]
     Indication: APLASTIC ANAEMIA
  2. METHYLPREDNISOLONE [Concomitant]
  3. VORICONAZOLE [Suspect]
     Dosage: 6 MG/KG, 12 HRLY
     Route: 042
  4. VORICONAZOLE [Suspect]
     Dosage: 4 MG/KG, 12 HRLY
     Route: 042
  5. TETRACOSACTRIN [Concomitant]
  6. ANTI-THYMOCYTE GLOBULIN NOS [Concomitant]

REACTIONS (7)
  - HYPONATRAEMIA [None]
  - BLOOD POTASSIUM INCREASED [None]
  - SOMNOLENCE [None]
  - BLOOD OSMOLARITY DECREASED [None]
  - URINE OSMOLARITY DECREASED [None]
  - BRONCHOPULMONARY ASPERGILLOSIS [None]
  - BLOOD CREATININE INCREASED [None]
